FAERS Safety Report 14550711 (Version 1)
Quarter: 2018Q1

REPORT INFORMATION
  Report Type: Spontaneous
  Country: IN (occurrence: IN)
  Receive Date: 20180220
  Receipt Date: 20180220
  Transmission Date: 20180509
  Serious: Yes (Other)
  Sender: FDA-Public Use
  Company Number: IN-SUN PHARMACEUTICAL INDUSTRIES LTD-2018R1-162479

PATIENT
  Age: 31 Year
  Sex: Female

DRUGS (3)
  1. LUPRIDE DEPOT [Suspect]
     Active Substance: LEUPROLIDE ACETATE
     Dosage: UNK
     Route: 065
     Dates: start: 20171119
  2. LUPRIDE DEPOT [Suspect]
     Active Substance: LEUPROLIDE ACETATE
     Indication: BLOOD GONADOTROPHIN
     Dosage: UNK
     Route: 065
     Dates: start: 20170922
  3. LUPRIDE DEPOT [Suspect]
     Active Substance: LEUPROLIDE ACETATE
     Dosage: UNK
     Route: 065
     Dates: start: 20171021

REACTIONS (2)
  - Vaginal haemorrhage [Unknown]
  - Drug ineffective [Unknown]

NARRATIVE: CASE EVENT DATE: 2017
